FAERS Safety Report 21453039 (Version 1)
Quarter: 2022Q4

REPORT INFORMATION
  Report Type: Spontaneous
  Country: US (occurrence: None)
  Receive Date: 20221012
  Receipt Date: 20221012
  Transmission Date: 20230113
  Serious: No
  Sender: FDA-Public Use
  Company Number: None

PATIENT
  Age: 45 Year
  Sex: Female

DRUGS (1)
  1. KISQALI [Suspect]
     Active Substance: RIBOCICLIB
     Indication: Breast cancer
     Dosage: 400MG  DAILY X21 DAY ORAL?
     Route: 048
     Dates: start: 20220627

REACTIONS (5)
  - Palpitations [None]
  - Syncope [None]
  - Rash [None]
  - Neutrophil count decreased [None]
  - Cardiotoxicity [None]
